FAERS Safety Report 4840788-9 (Version None)
Quarter: 2005Q4

REPORT INFORMATION
  Report Type: 
  Country: None (occurrence: None)
  Receive Date: 20051130
  Receipt Date: 20041102
  Transmission Date: 20060501
  Serious: No
  Sender: FDA-Public Use
  Company Number: US-BRISTOL-MYERS SQUIBB COMPANY-12754040

PATIENT
  Age: 76 Year
  Sex: Male
  Weight: 107 kg

DRUGS (8)
  1. AVALIDE [Suspect]
     Indication: CARDIAC DISORDER
     Dosage: INITIATED 300 MG/12.5 MG, 1 TABLET DAILY ^A FEW YEARS AGO.^
     Route: 048
     Dates: end: 20041018
  2. AMARYL [Concomitant]
  3. ASPIRIN [Concomitant]
  4. CARDIZEM [Concomitant]
  5. COUMADIN [Concomitant]
  6. DYNACIRC [Concomitant]
  7. LANOXIN [Concomitant]
  8. LASIX [Concomitant]

REACTIONS (6)
  - COUGH DECREASED [None]
  - DYSPHAGIA [None]
  - PHARYNGOLARYNGEAL PAIN [None]
  - PHARYNX DISCOMFORT [None]
  - PYREXIA [None]
  - TONSILLAR HYPERTROPHY [None]
